FAERS Safety Report 16134988 (Version 1)
Quarter: 2019Q2

REPORT INFORMATION
  Report Type: Spontaneous
  Country: US (occurrence: US)
  Receive Date: 20190329
  Receipt Date: 20190329
  Transmission Date: 20190711
  Serious: No
  Sender: FDA-Public Use
  Company Number: US-TEVA-2019-US-1013164

PATIENT
  Sex: Female
  Weight: 81.65 kg

DRUGS (1)
  1. ZOLPIDEM TABLET TEVA [Suspect]
     Active Substance: ZOLPIDEM TARTRATE
     Indication: INSOMNIA
     Route: 048
     Dates: start: 20180208

REACTIONS (1)
  - Drug ineffective [Unknown]
